FAERS Safety Report 5348391-1 (Version None)
Quarter: 2007Q2

REPORT INFORMATION
  Report Type: 
  Country: None (occurrence: None)
  Receive Date: 20070605
  Receipt Date: 20070524
  Transmission Date: 20071010
  Serious: Yes (Death)
  Sender: FDA-Public Use
  Company Number: 2007AL001727

PATIENT
  Age: 73 Year
  Sex: Male

DRUGS (5)
  1. FLUOXETINE [Suspect]
     Indication: DEPRESSION
     Dosage: 40 MG; QD; PO
     Route: 048
     Dates: start: 20050511, end: 20050519
  2. VALPROIC ACID [Concomitant]
  3. ACETYLSALICYLIC ACID SRT [Concomitant]
  4. SENNA [Concomitant]
  5. CALCIUM CARBONATE [Concomitant]

REACTIONS (4)
  - CHOREA [None]
  - DEMENTIA [None]
  - HYPERNATRAEMIA [None]
  - SUBARACHNOID HAEMORRHAGE [None]
